FAERS Safety Report 16446651 (Version 2)
Quarter: 2019Q2

REPORT INFORMATION
  Report Type: Report from Study
  Country: EG (occurrence: EG)
  Receive Date: 20190618
  Receipt Date: 20190620
  Transmission Date: 20190711
  Serious: Yes (Hospitalization, Other)
  Sender: FDA-Public Use
  Company Number: PHHY2019EG135405

PATIENT
  Age: 70 Year
  Sex: Male

DRUGS (3)
  1. XANTHISTOP [Concomitant]
     Indication: BLOOD URIC ACID ABNORMAL
     Dosage: 80 MG, QD
     Route: 065
  2. CONCOR [Concomitant]
     Active Substance: BISOPROLOL FUMARATE
     Indication: HYPERTENSION
     Dosage: 1 DF, QD
     Route: 065
     Dates: start: 2016
  3. GLIVEC [Suspect]
     Active Substance: IMATINIB MESYLATE
     Indication: CHRONIC MYELOID LEUKAEMIA
     Dosage: 400 MG, QD
     Route: 048
     Dates: start: 2008, end: 2016

REACTIONS (16)
  - Blood creatinine increased [Recovering/Resolving]
  - Pruritus [Not Recovered/Not Resolved]
  - Hyperhidrosis [Recovered/Resolved]
  - Decreased immune responsiveness [Recovered/Resolved]
  - Polymerase chain reaction positive [Recovering/Resolving]
  - White blood cell count increased [Recovered/Resolved]
  - Pain [Not Recovered/Not Resolved]
  - Peripheral coldness [Not Recovered/Not Resolved]
  - Blister [Not Recovered/Not Resolved]
  - Concomitant disease aggravated [Not Recovered/Not Resolved]
  - Fatigue [Recovered/Resolved]
  - Generalised oedema [Not Recovered/Not Resolved]
  - Drug ineffective [Unknown]
  - Arthritis [Not Recovered/Not Resolved]
  - Movement disorder [Not Recovered/Not Resolved]
  - Skin lesion [Not Recovered/Not Resolved]

NARRATIVE: CASE EVENT DATE: 2008
